FAERS Safety Report 6802705-1 (Version None)
Quarter: 2010Q2

REPORT INFORMATION
  Report Type: 
  Country: None (occurrence: None)
  Receive Date: 20100628
  Receipt Date: 20100616
  Transmission Date: 20101027
  Serious: Yes (Hospitalization)
  Sender: FDA-Public Use
  Company Number: US-CELGENEUS-163-20785-10061719

PATIENT
  Sex: Male

DRUGS (2)
  1. THALOMID [Suspect]
     Indication: MULTIPLE MYELOMA
     Route: 048
     Dates: start: 20060801
  2. THALOMID [Suspect]
     Dosage: 200-100MG
     Route: 048
     Dates: start: 20051101, end: 20060801

REACTIONS (1)
  - HIP FRACTURE [None]
